FAERS Safety Report 7197757-6 (Version None)
Quarter: 2010Q4

REPORT INFORMATION
  Report Type: 
  Country: None (occurrence: None)
  Receive Date: 20101214
  Receipt Date: 20101201
  Transmission Date: 20110411
  Serious: Yes (Hospitalization, Other)
  Sender: FDA-Public Use
  Company Number: 2010AM003475

PATIENT
  Age: 64 Year
  Sex: Male
  Weight: 136.0791 kg

DRUGS (3)
  1. SYMLIN [Suspect]
     Indication: TYPE 2 DIABETES MELLITUS
     Dosage: 60 MCG; QPM; SC
     Route: 058
     Dates: start: 20101201
  2. SYMLIN [Suspect]
     Indication: TYPE 2 DIABETES MELLITUS
     Dosage: (120 MCG;BID;SC) (60 MCG;BID;SC)
     Route: 058
  3. HUMULIN R [Concomitant]

REACTIONS (7)
  - ABDOMINAL PAIN UPPER [None]
  - APPENDICECTOMY [None]
  - CHOLECYSTECTOMY [None]
  - DRUG PRESCRIBING ERROR [None]
  - HALLUCINATION [None]
  - NAUSEA [None]
  - ORGAN FAILURE [None]
